FAERS Safety Report 4326785-0 (Version None)
Quarter: 2004Q1

REPORT INFORMATION
  Report Type: 
  Country: None (occurrence: None)
  Receive Date: 20040330
  Receipt Date: 20040330
  Transmission Date: 20041129
  Serious: Yes (Death)
  Sender: FDA-Public Use
  Company Number: None

PATIENT
  Age: 73 Year
  Sex: Male

DRUGS (2)
  1. KETOCONAZOLE [Suspect]
     Indication: PROSTATE CANCER
     Dosage: 400 MG TID
     Dates: start: 20040202, end: 20040223
  2. HYDROCORTISONE [Suspect]
     Indication: PROSTATE CANCER
     Dosage: 20 MG BID
     Dates: start: 20040202, end: 20040223

REACTIONS (4)
  - ASTHENIA [None]
  - DYSPNOEA [None]
  - NAUSEA [None]
  - OXYGEN SATURATION DECREASED [None]
